FAERS Safety Report 6378542-1 (Version None)
Quarter: 2009Q3

REPORT INFORMATION
  Report Type: 
  Country: None (occurrence: None)
  Receive Date: 20090921
  Receipt Date: 20090908
  Transmission Date: 20100115
  Serious: Yes (Other)
  Sender: FDA-Public Use
  Company Number: CHPA2009US18732

PATIENT
  Age: 85 Year
  Sex: Female
  Weight: 57.1 kg

DRUGS (6)
  1. MAALOX UNKNOWN (NCH) (UNKNOWN) UNKNOWN [Suspect]
     Indication: DYSPEPSIA
     Dosage: PRN, BUT USED REGULARLY, ORAL
     Route: 048
     Dates: start: 19880101, end: 20080101
  2. ZESTRIL [Concomitant]
  3. MAXZIDE [Concomitant]
  4. ATENOLOL [Concomitant]
  5. ASPIRIN [Concomitant]
  6. VITAMIN B12 [Concomitant]

REACTIONS (7)
  - BLOOD CREATINE INCREASED [None]
  - BLOOD UREA INCREASED [None]
  - HYPERTENSION [None]
  - INTENTIONAL DRUG MISUSE [None]
  - JOINT SWELLING [None]
  - OSTEOPOROSIS [None]
  - PLATELET COUNT DECREASED [None]
